FAERS Safety Report 7691853-2 (Version None)
Quarter: 2011Q3

REPORT INFORMATION
  Report Type: 
  Country: None (occurrence: None)
  Receive Date: 20110815
  Receipt Date: 20110803
  Transmission Date: 20111222
  Serious: Yes (Death, Hospitalization)
  Sender: FDA-Public Use
  Company Number: 120697

PATIENT
  Age: 14 Year
  Sex: Female

DRUGS (1)
  1. CYCLOSPORINE [Suspect]
     Indication: IMMUNOSUPPRESSION

REACTIONS (2)
  - PULMONARY HAEMORRHAGE [None]
  - POSTERIOR REVERSIBLE ENCEPHALOPATHY SYNDROME [None]
